FAERS Safety Report 9374550 (Version 1)
Quarter: 2013Q2

REPORT INFORMATION
  Report Type: Spontaneous
  Country: DE (occurrence: None)
  Receive Date: 20130624
  Receipt Date: 20130624
  Transmission Date: 20140414
  Serious: Yes (Other)
  Sender: FDA-Public Use
  Company Number: DE-1198796

PATIENT
  Sex: Male

DRUGS (2)
  1. AZOPT [Suspect]
     Indication: GLAUCOMA
     Route: 047
     Dates: start: 201302
  2. XALACOM [Concomitant]

REACTIONS (7)
  - Corneal oedema [None]
  - Visual acuity reduced [None]
  - Injury corneal [None]
  - Product deposit [None]
  - Lacrimation increased [None]
  - Ocular hyperaemia [None]
  - Eye swelling [None]
